FAERS Safety Report 18990208 (Version 1)
Quarter: 2021Q1

REPORT INFORMATION
  Report Type: Spontaneous
  Country: IT (occurrence: IT)
  Receive Date: 20210310
  Receipt Date: 20210310
  Transmission Date: 20210420
  Serious: Yes (Hospitalization)
  Sender: FDA-Public Use
  Company Number: IT-009507513-2103ITA001533

PATIENT
  Age: 62 Year
  Sex: Male
  Weight: 70 kg

DRUGS (2)
  1. KEYTRUDA [Suspect]
     Active Substance: PEMBROLIZUMAB
     Indication: BLADDER CANCER
     Dosage: 200 MILLIGRAM, CYCLICAL
     Route: 042
     Dates: start: 20201020, end: 20201111
  2. METFORMIN [Concomitant]
     Active Substance: METFORMIN HYDROCHLORIDE
     Route: 048

REACTIONS (2)
  - Polyarthritis [Recovering/Resolving]
  - Diabetic metabolic decompensation [Recovering/Resolving]

NARRATIVE: CASE EVENT DATE: 20201114
